FAERS Safety Report 8157022-7 (Version None)
Quarter: 2012Q1

REPORT INFORMATION
  Report Type: 
  Country: None (occurrence: None)
  Receive Date: 20120222
  Receipt Date: 20120213
  Transmission Date: 20120608
  Serious: Yes (Other)
  Sender: FDA-Public Use
  Company Number: US-US-EMD SERONO, INC.-7113199

PATIENT
  Sex: Female
  Weight: 52 kg

DRUGS (1)
  1. REBIF [Suspect]
     Indication: RELAPSING-REMITTING MULTIPLE SCLEROSIS
     Route: 058
     Dates: start: 20070803

REACTIONS (5)
  - STRABISMUS [None]
  - INJECTION SITE PAIN [None]
  - OPTIC ATROPHY [None]
  - PARAESTHESIA [None]
  - OPTIC NEURITIS [None]
